FAERS Safety Report 8311551 (Version 5)
Quarter: 2015Q4

REPORT INFORMATION
  Report Type: Spontaneous
  Country: US (occurrence: US)
  Receive Date: 20111227
  Receipt Date: 20151120
  Transmission Date: 20160305
  Serious: Yes (Hospitalization)
  Sender: FDA-Public Use
  Company Number: US-BAYER-2011-122080

PATIENT
  Age: 46 Year
  Sex: Female
  Weight: 93 kg

DRUGS (6)
  1. CRESTOR [Concomitant]
     Active Substance: ROSUVASTATIN CALCIUM
  2. YAZ [Suspect]
     Active Substance: DROSPIRENONE\ETHINYL ESTRADIOL
     Indication: ACNE
     Dosage: UNK
     Dates: start: 20090110, end: 20091015
  3. YAZ [Suspect]
     Active Substance: DROSPIRENONE\ETHINYL ESTRADIOL
     Indication: PREMENSTRUAL DYSPHORIC DISORDER
     Dosage: UNK
     Dates: start: 20070218, end: 20071217
  4. YAZ [Suspect]
     Active Substance: DROSPIRENONE\ETHINYL ESTRADIOL
     Indication: ENDOMETRIOSIS
     Dosage: UNK
     Dates: start: 20080113, end: 20081214
  5. YAZ [Suspect]
     Active Substance: DROSPIRENONE\ETHINYL ESTRADIOL
     Indication: ACNE
     Dosage: UNK
     Route: 048
     Dates: start: 2007, end: 20091101
  6. ADVIL [Concomitant]
     Active Substance: IBUPROFEN

REACTIONS (9)
  - Cerebrovascular accident [Recovering/Resolving]
  - Muscular weakness [None]
  - Cerebrovascular accident [None]
  - Dysarthria [None]
  - Cognitive disorder [None]
  - Balance disorder [None]
  - Hemiplegia [None]
  - Pain [None]
  - Fear [None]

NARRATIVE: CASE EVENT DATE: 200911
